FAERS Safety Report 17035643 (Version 2)
Quarter: 2020Q1

REPORT INFORMATION
  Report Type: Report from Study
  Country: ES (occurrence: ES)
  Receive Date: 20191115
  Receipt Date: 20200219
  Transmission Date: 20200409
  Serious: Yes (Other)
  Sender: FDA-Public Use
  Company Number: ES-VELOXIS PHARMACEUTICALS-2017VELES-000066

PATIENT
  Age: 55 Year
  Sex: Male
  Weight: 98.7 kg

DRUGS (25)
  1. ENVARSUS XR [Suspect]
     Active Substance: TACROLIMUS
     Dosage: 4 MG, QD
  2. CEFTAZIDIMA [Concomitant]
     Active Substance: CEFTAZIDIME
     Indication: PROPHYLAXIS
     Dosage: 2 G/8 H
     Dates: start: 20170429, end: 20170501
  3. EVEROLIMUS. [Concomitant]
     Active Substance: EVEROLIMUS
     Dosage: 5 MG
     Route: 065
     Dates: start: 20170817
  4. ENVARSUS XR [Suspect]
     Active Substance: TACROLIMUS
     Indication: LIVER TRANSPLANT
     Dosage: 6 MG, QD
     Route: 048
     Dates: start: 20170512, end: 20170517
  5. ENVARSUS XR [Suspect]
     Active Substance: TACROLIMUS
     Dosage: 7 MG, QD
     Dates: start: 20170509, end: 20170511
  6. ENVARSUS XR [Suspect]
     Active Substance: TACROLIMUS
     Dosage: 10 MG, QD
     Dates: start: 20170506, end: 20170508
  7. ENVARSUS XR [Suspect]
     Active Substance: TACROLIMUS
     Indication: IMMUNOSUPPRESSION
     Dosage: 5 MG, QD
     Dates: start: 20170518
  8. ENVARSUS XR [Suspect]
     Active Substance: TACROLIMUS
     Dosage: 7 MG, QD
     Dates: start: 20170504, end: 20170505
  9. OMEPRAZOL [Concomitant]
     Active Substance: OMEPRAZOLE
     Indication: PROPHYLAXIS
     Dosage: 20 MG, QD
     Dates: start: 20170429
  10. INSULIN [Concomitant]
     Active Substance: INSULIN NOS
     Indication: HYPERGLYCAEMIA
     Dosage: VARIABLE
     Dates: start: 20170429, end: 20170502
  11. CALCIUM GLUCONATE. [Concomitant]
     Active Substance: CALCIUM GLUCONATE
     Indication: PROPHYLAXIS
     Dosage: UNK
     Dates: start: 20170429, end: 20170502
  12. FUROSEMIDE. [Concomitant]
     Active Substance: FUROSEMIDE
     Indication: PROPHYLAXIS
     Dosage: 20 MG / 12H
     Dates: start: 20170502, end: 20170524
  13. VALGANCICLOVIR. [Concomitant]
     Active Substance: VALGANCICLOVIR
     Indication: PROPHYLAXIS
     Dosage: 900 MG, QD
     Dates: start: 20170509
  14. VITAMIN K [Concomitant]
     Active Substance: PHYTONADIONE
     Indication: PROPHYLAXIS
     Dosage: UNK
     Dates: start: 20170429, end: 20170502
  15. IPRATROPIO [Concomitant]
     Active Substance: IPRATROPIUM BROMIDE
     Indication: PROPHYLAXIS
     Dosage: 500 MG/6H
     Dates: start: 20170429, end: 20170502
  16. FOLIC ACID. [Concomitant]
     Active Substance: FOLIC ACID
     Indication: PROPHYLAXIS
     Dosage: 15 MG, QD
     Dates: start: 20170509
  17. ENVARSUS XR [Suspect]
     Active Substance: TACROLIMUS
     Dosage: 2 MG
     Route: 048
  18. ADOPORT [Concomitant]
     Active Substance: TACROLIMUS
     Indication: PRODUCT USED FOR UNKNOWN INDICATION
     Dosage: UNK
     Dates: start: 20170502, end: 20170503
  19. TEICOPLANINA [Concomitant]
     Active Substance: TEICOPLANIN
     Indication: PROPHYLAXIS
     Dosage: 400 MG, QD
     Dates: start: 20170430, end: 20170501
  20. HIBOR [Concomitant]
     Indication: PROPHYLAXIS
     Dosage: 3500 IU, QD
     Dates: start: 20170501, end: 20170508
  21. ENVARSUS XR [Suspect]
     Active Substance: TACROLIMUS
     Dosage: 5 MG, QD
     Route: 048
     Dates: start: 20170519
  22. PARACETAMOL [Concomitant]
     Active Substance: ACETAMINOPHEN
     Indication: PROPHYLAXIS
     Dosage: 1 G / 8H
     Dates: start: 20170429, end: 20170508
  23. ENVARSUS XR [Suspect]
     Active Substance: TACROLIMUS
     Dosage: 2 MG, QD
     Route: 048
     Dates: start: 20170622, end: 20170809
  24. CALCIUM VITAMIN D [Concomitant]
     Active Substance: CALCIUM\VITAMIN D
     Indication: PROPHYLAXIS
     Dosage: 1000 MG / 880 / UI / QD
     Dates: start: 20170509
  25. EVEROLIMUS. [Concomitant]
     Active Substance: EVEROLIMUS
     Indication: RENAL FAILURE
     Dosage: 1 MG
     Route: 065
     Dates: start: 20170622

REACTIONS (4)
  - Renal failure [Recovered/Resolved]
  - Hyperkalaemia [Recovered/Resolved]
  - Tremor [Recovered/Resolved]
  - Transplant rejection [Recovered/Resolved]

NARRATIVE: CASE EVENT DATE: 20170517
